FAERS Safety Report 6338859-3 (Version None)
Quarter: 2009Q3

REPORT INFORMATION
  Report Type: 
  Country: None (occurrence: None)
  Receive Date: 20090903
  Receipt Date: 20090824
  Transmission Date: 20100115
  Serious: Yes (Life-Threatening, Hospitalization)
  Sender: FDA-Public Use
  Company Number: US-WYE-H10707109

PATIENT
  Age: 74 Year
  Sex: Female

DRUGS (5)
  1. PRISTIQ [Suspect]
     Indication: MAJOR DEPRESSION
     Route: 048
     Dates: start: 20090416, end: 20090801
  2. ALBUTEROL [Concomitant]
     Dosage: UNKNOWN
     Route: 065
  3. FIORICET [Concomitant]
     Dosage: UNKNOWN
     Route: 065
  4. LEVOTHYROXINE SODIUM [Concomitant]
     Route: 048
  5. PREDNISONE [Concomitant]
     Route: 048

REACTIONS (2)
  - CARDIAC ARREST [None]
  - MYOCARDIAL INFARCTION [None]
